FAERS Safety Report 7998365-7 (Version None)
Quarter: 2011Q4

REPORT INFORMATION
  Report Type: 
  Country: None (occurrence: None)
  Receive Date: 20111221
  Receipt Date: 20110812
  Transmission Date: 20120403
  Serious: No
  Sender: FDA-Public Use
  Company Number: US-GLAXOSMITHKLINE-A0941391A

PATIENT
  Sex: Female

DRUGS (1)
  1. LOVAZA [Suspect]
     Indication: PRODUCT USED FOR UNKNOWN INDICATION

REACTIONS (7)
  - ERUCTATION [None]
  - OEDEMA MOUTH [None]
  - ILL-DEFINED DISORDER [None]
  - ABDOMINAL DISCOMFORT [None]
  - DIZZINESS [None]
  - RASH [None]
  - ORAL MUCOSAL ERYTHEMA [None]
